FAERS Safety Report 6023919-7 (Version None)
Quarter: 2008Q4

REPORT INFORMATION
  Report Type: 
  Country: None (occurrence: None)
  Receive Date: 20081230
  Receipt Date: 20081223
  Transmission Date: 20090506
  Serious: Yes (Death)
  Sender: FDA-Public Use
  Company Number: US-ASTRAZENECA-2008AC03461

PATIENT
  Age: 31 Year
  Sex: Female

DRUGS (4)
  1. LIDOCAINE [Suspect]
     Route: 051
  2. METHAMPHETAMINE [Suspect]
     Route: 051
  3. AMPHETAMINE SULFATE [Suspect]
     Route: 051
  4. MIRTAZAPINE [Suspect]
     Route: 051

REACTIONS (2)
  - CARDIO-RESPIRATORY ARREST [None]
  - DRUG ABUSE [None]
